FAERS Safety Report 9728039 (Version 2)
Quarter: 2013Q4

REPORT INFORMATION
  Report Type: Spontaneous
  Country: JP (occurrence: None)
  Receive Date: 20131127
  Receipt Date: 20131205
  Transmission Date: 20140711
  Serious: Yes (Other)
  Sender: FDA-Public Use
  Company Number: 2024185

PATIENT
  Age: 84 Year
  Sex: Female
  Weight: 45.6 kg

DRUGS (2)
  1. DEXMEDETOMIDINE HYDROCHLORIDE) [Suspect]
     Indication: SEDATION
     Dosage: 3 MCG/KG/HR, UNKNOWN, INTRAVENOUS (NOT OTHERWISE SPECIFIED)?
     Route: 042
     Dates: start: 20131111, end: 20131111
  2. MEPIVACAINE HYDROCHLORIDE) [Concomitant]

REACTIONS (2)
  - Renal impairment [None]
  - Hypotension [None]
